FAERS Safety Report 6586359-8 (Version None)
Quarter: 2010Q1

REPORT INFORMATION
  Report Type: 
  Country: None (occurrence: None)
  Receive Date: 20100216
  Receipt Date: 20100216
  Transmission Date: 20100710
  Serious: No
  Sender: FDA-Public Use
  Company Number: None

PATIENT
  Sex: Female

DRUGS (1)
  1. PURE PURPLE PARTY [Suspect]

REACTIONS (4)
  - ANXIETY [None]
  - DIARRHOEA [None]
  - INSOMNIA [None]
  - NAUSEA [None]
